FAERS Safety Report 12514576 (Version 1)
Quarter: 2016Q2

REPORT INFORMATION
  Report Type: Spontaneous
  Country: US (occurrence: None)
  Receive Date: 20160629
  Receipt Date: 20160629
  Transmission Date: 20160815
  Serious: Yes (Hospitalization)
  Sender: FDA-Public Use
  Company Number: None

PATIENT
  Age: 69 Year
  Sex: Male
  Weight: 87.3 kg

DRUGS (8)
  1. VIEKIRA PAK [Suspect]
     Active Substance: DASABUVIR\OMBITASVIR\PARITAPREVIR\RITONAVIR
     Indication: HEPATITIS C
     Dosage: 12.5/75/50/250MG 1XDAILY PO
     Route: 048
     Dates: start: 20150228, end: 20150523
  2. AMLODIPINE [Concomitant]
     Active Substance: AMLODIPINE BESYLATE
  3. LIPITOR [Concomitant]
     Active Substance: ATORVASTATIN CALCIUM
  4. VITAMIN D3 [Concomitant]
     Active Substance: CHOLECALCIFEROL
  5. COQ10 [Concomitant]
     Active Substance: UBIDECARENONE
  6. ASPIRIN. [Concomitant]
     Active Substance: ASPIRIN
  7. DIOVAN [Concomitant]
     Active Substance: VALSARTAN
  8. CENTRUM SILVER [Concomitant]
     Active Substance: MINERALS\VITAMINS

REACTIONS (1)
  - Transient global amnesia [None]

NARRATIVE: CASE EVENT DATE: 20150428
